FAERS Safety Report 8221342-8 (Version None)
Quarter: 2012Q1

REPORT INFORMATION
  Report Type: 
  Country: None (occurrence: None)
  Receive Date: 20120320
  Receipt Date: 20120315
  Transmission Date: 20120608
  Serious: Yes (Death, Other)
  Sender: FDA-Public Use
  Company Number: PHFR2011GB03042

PATIENT
  Sex: Female
  Weight: 119 kg

DRUGS (3)
  1. CLOZARIL [Suspect]
     Indication: SCHIZOPHRENIA
     Dosage: 400 MG
     Route: 048
     Dates: start: 19950731
  2. FLUOXETINE [Concomitant]
     Indication: SCHIZOPHRENIA
     Dosage: 60 MG, DAILY
     Route: 065
     Dates: start: 19990101
  3. CLOZARIL [Suspect]
     Dosage: 375 MG, DAILY
     Route: 048

REACTIONS (7)
  - CYANOSIS [None]
  - MALAISE [None]
  - FATIGUE [None]
  - TOXICITY TO VARIOUS AGENTS [None]
  - MENTAL IMPAIRMENT [None]
  - OVERDOSE [None]
  - DYSPNOEA [None]
